FAERS Safety Report 21912274 (Version 1)
Quarter: 2023Q1

REPORT INFORMATION
  Report Type: Spontaneous
  Country: TR (occurrence: TR)
  Receive Date: 20230125
  Receipt Date: 20230125
  Transmission Date: 20230418
  Serious: Yes (Hospitalization, Other)
  Sender: FDA-Public Use
  Company Number: TR-ALLERGAN-2301385US

PATIENT
  Sex: Male

DRUGS (17)
  1. OZURDEX [Suspect]
     Active Substance: DEXAMETHASONE
     Indication: Behcet^s syndrome
     Dosage: UNK, SINGLE
     Route: 031
  2. INFLIXIMAB [Concomitant]
     Active Substance: INFLIXIMAB
     Indication: Behcet^s syndrome
     Dosage: UNK
  3. INFLIXIMAB [Concomitant]
     Active Substance: INFLIXIMAB
     Dosage: 6.5/ MG/KG INFUSIONS
  4. CYCLOSPORINE [Concomitant]
     Active Substance: CYCLOSPORINE
     Indication: Behcet^s syndrome
     Dosage: 200 MG, QD
  5. CYCLOSPORINE [Concomitant]
     Active Substance: CYCLOSPORINE
     Dosage: 3 MG/KG/DAY
  6. AZATHIOPRINE SODIUM [Concomitant]
     Active Substance: AZATHIOPRINE SODIUM
     Indication: Behcet^s syndrome
     Dosage: 1.6 MG/KG/DAY
  7. INTERFERON [Concomitant]
     Active Substance: INTERFERON
     Indication: Behcet^s syndrome
     Dosage: 3 MIU/DAY
  8. ADALIMUMAB [Concomitant]
     Active Substance: ADALIMUMAB
     Indication: Behcet^s syndrome
     Dosage: 80 MG
  9. Intravitreal ganciclovir [Concomitant]
  10. GANCICLOVIR [Concomitant]
     Active Substance: GANCICLOVIR
     Dosage: 5 MG/KG TWICE DAILY
     Route: 041
  11. VALGANCICLOVIR [Concomitant]
     Active Substance: VALGANCICLOVIR
     Dosage: UNK
     Route: 048
  12. TOCILIZUMAB [Concomitant]
     Active Substance: TOCILIZUMAB
     Dosage: 8 MG/KG/MONTH
  13. MYCOPHENOLATE MOFETIL [Concomitant]
     Active Substance: MYCOPHENOLATE MOFETIL
     Dosage: 2 G, QD
  14. CERTOLIZUMAB PEGOL [Concomitant]
     Active Substance: CERTOLIZUMAB PEGOL
     Dosage: 200 MG, Q WEEK
  15. CERTOLIZUMAB PEGOL [Concomitant]
     Active Substance: CERTOLIZUMAB PEGOL
     Dosage: UNK
  16. PREDNISOLONE [Concomitant]
     Active Substance: PREDNISOLONE
     Dosage: 7.5 MG, QD
  17. PREDNISOLONE [Concomitant]
     Active Substance: PREDNISOLONE
     Dosage: 80 MG, QD

REACTIONS (2)
  - Cytomegalovirus chorioretinitis [Recovering/Resolving]
  - Intraocular pressure increased [Recovering/Resolving]
